FAERS Safety Report 11184833 (Version 1)
Quarter: 2015Q2

REPORT INFORMATION
  Report Type: Spontaneous
  Country: FR (occurrence: FR)
  Receive Date: 20150612
  Receipt Date: 20150612
  Transmission Date: 20150821
  Serious: Yes (Other)
  Sender: FDA-Public Use
  Company Number: FR-UCBSA-2015003877

PATIENT
  Age: 40 Year
  Sex: Female

DRUGS (3)
  1. VIMPAT [Suspect]
     Active Substance: LACOSAMIDE
     Indication: EPILEPSY
     Dosage: 200 MG, 2X/DAY (BID)
     Route: 048
  2. TEMODAL [Concomitant]
     Active Substance: TEMOZOLOMIDE
     Dosage: 150 MG/M2, (5 DAYS MONTHLY FOR 6 WEEKS)
     Dates: start: 20150108, end: 20150112
  3. TEMODAL [Concomitant]
     Active Substance: TEMOZOLOMIDE
     Indication: BRAIN NEOPLASM
     Dosage: 150 MG/M2, 5 DAYS MONTHLY FOR 6 WEEKS
     Dates: start: 2014

REACTIONS (2)
  - Abortion induced [Unknown]
  - Pregnancy [Unknown]

NARRATIVE: CASE EVENT DATE: 20141228
